FAERS Safety Report 16368500 (Version 1)
Quarter: 2019Q2

REPORT INFORMATION
  Report Type: Spontaneous
  Country: BE (occurrence: BE)
  Receive Date: 20190529
  Receipt Date: 20190529
  Transmission Date: 20190711
  Serious: Yes (Other)
  Sender: FDA-Public Use
  Company Number: BE-GLAXOSMITHKLINE-BE2019094800

PATIENT
  Sex: Female

DRUGS (1)
  1. LAMBIPOL [Suspect]
     Active Substance: LAMOTRIGINE
     Indication: PRODUCT USED FOR UNKNOWN INDICATION
     Dosage: NORMALLY TAKES 25 MG PER DAY, HAS 1 DAY FORGOTTEN AND HAS THEN TAKEN 50 MG
     Route: 048

REACTIONS (4)
  - Rash [Unknown]
  - Contusion [Unknown]
  - Pruritus [Unknown]
  - Chills [Unknown]
